FAERS Safety Report 11743495 (Version 2)
Quarter: 2016Q4

REPORT INFORMATION
  Report Type: Spontaneous
  Country: US (occurrence: US)
  Receive Date: 20151116
  Receipt Date: 20161104
  Transmission Date: 20170206
  Serious: No
  Sender: FDA-Public Use
  Company Number: US-IMPAX LABORATORIES, INC-2015-IPXL-00730

PATIENT
  Sex: Female
  Weight: 86 kg

DRUGS (1)
  1. LORATADINE ODT [Suspect]
     Active Substance: LORATADINE
     Indication: HYPERSENSITIVITY
     Dosage: 1 TABLET ONCE DAILY
     Route: 048
     Dates: end: 201507

REACTIONS (1)
  - Drug ineffective [Not Recovered/Not Resolved]
